FAERS Safety Report 10255772 (Version 1)
Quarter: 2014Q2

REPORT INFORMATION
  Report Type: Spontaneous
  Country: US (occurrence: US)
  Receive Date: 20140624
  Receipt Date: 20140624
  Transmission Date: 20141212
  Serious: Yes (Other)
  Sender: FDA-Public Use
  Company Number: US-ELI_LILLY_AND_COMPANY-US201406005410

PATIENT
  Sex: Male

DRUGS (2)
  1. HUMALOG 25% LISPRO, 75% NPL [Suspect]
     Indication: TYPE 1 DIABETES MELLITUS
     Dosage: 35 U, UNKNOWN
     Route: 065
     Dates: start: 2007
  2. LANTUS [Concomitant]
     Dosage: UNK
     Dates: start: 2003

REACTIONS (1)
  - Skin ulcer [Not Recovered/Not Resolved]
